FAERS Safety Report 5740655-2 (Version None)
Quarter: 2008Q2

REPORT INFORMATION
  Report Type: 
  Country: None (occurrence: None)
  Receive Date: 20080516
  Receipt Date: 20080515
  Transmission Date: 20081010
  Serious: Yes (Other)
  Sender: FDA-Public Use
  Company Number: B0520496A

PATIENT
  Age: 52 Year
  Sex: Female

DRUGS (3)
  1. AUGMENTIN '125' [Suspect]
     Indication: TOOTH ABSCESS
     Dosage: 3G PER DAY
     Route: 048
     Dates: start: 20080502, end: 20080504
  2. OKI [Suspect]
     Indication: PAIN
     Dosage: 160MG PER DAY
     Route: 048
     Dates: start: 20080502, end: 20080504
  3. DELAPRIDE [Concomitant]
     Dosage: 30MG PER DAY
     Route: 048

REACTIONS (1)
  - DIARRHOEA HAEMORRHAGIC [None]
